FAERS Safety Report 13157468 (Version 1)
Quarter: 2017Q1

REPORT INFORMATION
  Report Type: Spontaneous
  Country: US (occurrence: US)
  Receive Date: 20170125
  Receipt Date: 20170125
  Transmission Date: 20170428
  Serious: No
  Sender: FDA-Public Use
  Company Number: None

PATIENT
  Age: 80 Year
  Sex: Female

DRUGS (18)
  1. DIOVAN [Concomitant]
     Active Substance: VALSARTAN
  2. PROLIA [Suspect]
     Active Substance: DENOSUMAB
     Indication: OSTEOPOROSIS
     Dosage: 60 MG Q6M SC
     Route: 058
     Dates: start: 20140730
  3. LASIX [Concomitant]
     Active Substance: FUROSEMIDE
  4. LEVOTHYROXINE. [Concomitant]
     Active Substance: LEVOTHYROXINE
  5. ELMIRON [Concomitant]
     Active Substance: PENTOSAN POLYSULFATE SODIUM
  6. PLAVIX [Concomitant]
     Active Substance: CLOPIDOGREL BISULFATE
  7. NEXIUM [Concomitant]
     Active Substance: ESOMEPRAZOLE MAGNESIUM
  8. PRAVASTATIN. [Concomitant]
     Active Substance: PRAVASTATIN
  9. CALCIUM [Concomitant]
     Active Substance: CALCIUM
  10. VITAMIN D [Concomitant]
     Active Substance: CHOLECALCIFEROL
  11. NORAXO [Concomitant]
  12. BALTHARTIN [Concomitant]
  13. VITAMIN B COMPLEX [Concomitant]
     Active Substance: CYANOCOBALAMIN\DEXPANTHENOL\NIACINAMIDE\PYRIDOXINE HYDROCHLORIDE\RIBOFLAVIN 5^-PHOSPHATE SODIUM\THIAMINE HYDROCHLORIDE\VITAMIN B COMPLEX
  14. GABAPENTIN. [Concomitant]
     Active Substance: GABAPENTIN
  15. CYMBALTA [Concomitant]
     Active Substance: DULOXETINE HYDROCHLORIDE
  16. IRON [Concomitant]
     Active Substance: IRON
  17. FOLIC ACID. [Concomitant]
     Active Substance: FOLIC ACID
  18. FIMONADIDE [Concomitant]

REACTIONS (1)
  - Breast cancer [None]

NARRATIVE: CASE EVENT DATE: 20170124
